FAERS Safety Report 9055310 (Version 3)
Quarter: 2013Q1

REPORT INFORMATION
  Report Type: Spontaneous
  Country: US (occurrence: US)
  Receive Date: 20130206
  Receipt Date: 20130225
  Transmission Date: 20140127
  Serious: Yes (Death)
  Sender: FDA-Public Use
  Company Number: US-ALLERGAN-1214489US

PATIENT
  Age: 86 Year
  Sex: Male

DRUGS (1)
  1. TIMOLOL MALEATE [Suspect]
     Indication: INTRAOCULAR PRESSURE INCREASED
     Dosage: 1 GTT, OU QD
     Route: 047
     Dates: start: 2011, end: 2012

REACTIONS (2)
  - Cardiac failure congestive [Fatal]
  - Intraocular pressure increased [Unknown]
